FAERS Safety Report 24746090 (Version 1)
Quarter: 2024Q4

REPORT INFORMATION
  Report Type: Spontaneous
  Country: US (occurrence: US)
  Receive Date: 20241218
  Receipt Date: 20241218
  Transmission Date: 20250114
  Serious: Yes (Other)
  Sender: DR REDDYS
  Company Number: US-DRL-USA-LIT/USA/24/0018520

PATIENT
  Age: 54 Year
  Sex: Female

DRUGS (5)
  1. ISOTRETINOIN [Suspect]
     Active Substance: ISOTRETINOIN
     Indication: Xanthogranuloma
  2. HYDROXYCHLOROQUINE [Concomitant]
     Active Substance: HYDROXYCHLOROQUINE
     Indication: Xanthelasma
  3. METHOTREXATE [Concomitant]
     Active Substance: METHOTREXATE
     Indication: Xanthelasma
  4. immunoglobulin [Concomitant]
     Indication: Xanthelasma
     Route: 042
  5. THALIDOMIDE [Concomitant]
     Active Substance: THALIDOMIDE
     Indication: Xanthelasma

REACTIONS (1)
  - Drug ineffective for unapproved indication [Unknown]
